FAERS Safety Report 4820883-0 (Version None)
Quarter: 2005Q4

REPORT INFORMATION
  Report Type: 
  Country: None (occurrence: None)
  Receive Date: 20051104
  Receipt Date: 20051104
  Transmission Date: 20060501
  Serious: No
  Sender: FDA-Public Use
  Company Number: None

PATIENT
  Age: 11 Year
  Sex: Female

DRUGS (1)
  1. PHENERGAN [Suspect]
     Dosage: 25 MG IV    ONE DOSE
     Route: 042

REACTIONS (1)
  - AGITATION [None]
